FAERS Safety Report 9535835 (Version 1)
Quarter: 2013Q2

REPORT INFORMATION
  Report Type: Spontaneous
  Country: US (occurrence: None)
  Receive Date: 20130507
  Receipt Date: 20130507
  Transmission Date: 20140414
  Serious: Yes (Hospitalization)
  Sender: FDA-Public Use
  Company Number: PHEH2012US007738

PATIENT
  Sex: Female

DRUGS (1)
  1. TASIGNA (AMN107) CAPSULE [Suspect]
     Indication: CHRONIC MYELOID LEUKAEMIA
     Route: 048
     Dates: start: 20120324

REACTIONS (8)
  - Dyspnoea [None]
  - Muscle spasms [None]
  - Oropharyngeal pain [None]
  - Cough [None]
  - Hyperhidrosis [None]
  - Dizziness [None]
  - Nausea [None]
  - Constipation [None]
